FAERS Safety Report 17894245 (Version 2)
Quarter: 2020Q2

REPORT INFORMATION
  Report Type: Spontaneous
  Country: DE (occurrence: DE)
  Receive Date: 20200615
  Receipt Date: 20200626
  Transmission Date: 20200714
  Serious: Yes (Other)
  Sender: FDA-Public Use
  Company Number: DE-ASTELLAS-2020US019907

PATIENT
  Sex: Male

DRUGS (5)
  1. BETMIGA [Suspect]
     Active Substance: MIRABEGRON
     Indication: BLADDER TRABECULATION
     Route: 065
  2. CANDESARTAN. [Concomitant]
     Active Substance: CANDESARTAN
     Indication: HYPERTENSION
     Dosage: UNK UNK, UNKNOWN FREQ.
     Route: 065
  3. BETMIGA [Suspect]
     Active Substance: MIRABEGRON
     Indication: NEUROGENIC BLADDER
     Route: 065
  4. BETMIGA [Suspect]
     Active Substance: MIRABEGRON
     Indication: NEUROGENIC BLADDER
  5. BETMIGA [Suspect]
     Active Substance: MIRABEGRON
     Indication: BLADDER TRABECULATION

REACTIONS (10)
  - Blood pressure fluctuation [Unknown]
  - Swelling of eyelid [Unknown]
  - Dizziness [Unknown]
  - Bladder discomfort [Unknown]
  - Aortic aneurysm [Unknown]
  - Headache [Unknown]
  - Hypertension [Unknown]
  - Constipation [Unknown]
  - Bladder pain [Unknown]
  - Product use in unapproved indication [Unknown]
